FAERS Safety Report 8454701-9 (Version None)
Quarter: 2012Q2

REPORT INFORMATION
  Report Type: 
  Country: None (occurrence: None)
  Receive Date: 20120615
  Receipt Date: 20120615
  Transmission Date: 20120825
  Serious: Yes (Hospitalization)
  Sender: FDA-Public Use
  Company Number: None

PATIENT
  Age: 52 Year
  Sex: Female

DRUGS (2)
  1. LOSARTAN POTASSIUM [Concomitant]
  2. XELODA [Suspect]
     Indication: COLON CANCER
     Dosage: 1500MG TWICE DAILY ORAL
     Route: 048
     Dates: start: 20120427, end: 20120525

REACTIONS (4)
  - LOSS OF CONSCIOUSNESS [None]
  - HYPOKALAEMIA [None]
  - HYPOTENSION [None]
  - HYPONATRAEMIA [None]
